FAERS Safety Report 19483481 (Version 1)
Quarter: 2021Q3

REPORT INFORMATION
  Report Type: Spontaneous
  Country: US (occurrence: US)
  Receive Date: 20210701
  Receipt Date: 20210701
  Transmission Date: 20211014
  Serious: Yes (Life-Threatening, Hospitalization)
  Sender: FDA-Public Use
  Company Number: US-STANDARD HOMEOPATHIC-2113378

PATIENT
  Age: 60 Year
  Sex: Female

DRUGS (1)
  1. HYLANDS LEG CRAMPS [Suspect]
     Active Substance: HOMEOPATHICS
     Indication: MUSCULOSKELETAL STIFFNESS
     Route: 048

REACTIONS (2)
  - Confusional state [Unknown]
  - Unresponsive to stimuli [Unknown]

NARRATIVE: CASE EVENT DATE: 20210623
